FAERS Safety Report 18321777 (Version 1)
Quarter: 2020Q3

REPORT INFORMATION
  Report Type: Spontaneous
  Country: US (occurrence: US)
  Receive Date: 20200926
  Receipt Date: 20200926
  Transmission Date: 20201103
  Serious: Yes (Other)
  Sender: FDA-Public Use
  Company Number: None

PATIENT
  Age: 4 Decade
  Sex: Male

DRUGS (1)
  1. REMDESIVIR. [Suspect]
     Active Substance: REMDESIVIR
     Indication: COVID-19
     Dosage: DURATION: 10 DAYS(STOPED AFTER 4)
     Dates: start: 2020

REACTIONS (3)
  - Intentional product use issue [None]
  - Liver function test increased [None]
  - Rash maculo-papular [None]
